FAERS Safety Report 4845381-X (Version None)
Quarter: 2005Q4

REPORT INFORMATION
  Report Type: 
  Country: None (occurrence: None)
  Receive Date: 20051205
  Receipt Date: 20051130
  Transmission Date: 20060501
  Serious: Yes (Other)
  Sender: FDA-Public Use
  Company Number: US-BRISTOL-MYERS SQUIBB COMPANY-13201017

PATIENT
  Sex: Female

DRUGS (3)
  1. ERBITUX [Suspect]
     Indication: COLORECTAL CANCER
     Dosage: LOADING DOSE=400 MG/M2 INITIATED, INTERRUPTED, RE-STARTED AND COMPLETED 30-NOV-2005.
     Route: 042
     Dates: start: 20051130, end: 20051130
  2. BENADRYL [Concomitant]
     Indication: PREMEDICATION
     Route: 042
     Dates: start: 20051130, end: 20051130
  3. SOLU-MEDROL [Concomitant]
     Indication: PREMEDICATION
     Route: 042
     Dates: start: 20051130, end: 20051130

REACTIONS (4)
  - BLOOD PRESSURE ABNORMAL [None]
  - CHEST PAIN [None]
  - FLUSHING [None]
  - RASH GENERALISED [None]
